FAERS Safety Report 8007166-5 (Version None)
Quarter: 2011Q4

REPORT INFORMATION
  Report Type: 
  Country: None (occurrence: None)
  Receive Date: 20111227
  Receipt Date: 20111220
  Transmission Date: 20120403
  Serious: Yes (Hospitalization, Disabling)
  Sender: FDA-Public Use
  Company Number: GB-JNJFOC-20111108389

PATIENT
  Age: 65 Year
  Sex: Male
  Weight: 51 kg

DRUGS (17)
  1. AN UNKNOWN MEDICATION [Suspect]
     Route: 065
  2. FENTANYL [Suspect]
     Dosage: ONCE EVERY 3 DAYS
     Route: 062
  3. ACETAMINOPHEN [Suspect]
     Indication: PRODUCT USED FOR UNKNOWN INDICATION
     Route: 065
  4. LYRICA [Suspect]
     Route: 065
  5. TRAMADOL HCL [Suspect]
     Indication: PRODUCT USED FOR UNKNOWN INDICATION
     Route: 048
  6. ORAMORPH SR [Suspect]
     Indication: PRODUCT USED FOR UNKNOWN INDICATION
     Route: 065
  7. REQUIP [Concomitant]
     Dosage: DOESE REDUCED
     Route: 065
  8. TRAMADOL HCL [Suspect]
     Dosage: 3 TIMES A DAY
     Route: 048
  9. ACETAMINOPHEN [Suspect]
     Route: 065
  10. REQUIP [Concomitant]
     Indication: PARKINSON'S DISEASE
     Route: 065
  11. FENTANYL [Suspect]
     Indication: PRODUCT USED FOR UNKNOWN INDICATION
     Route: 062
  12. FLUOXETINE [Concomitant]
     Indication: DEPRESSION
     Route: 065
  13. METOCLOPRAMIDE [Concomitant]
     Indication: DEPRESSION
     Route: 065
  14. AN UNKNOWN MEDICATION [Suspect]
     Indication: PRODUCT USED FOR UNKNOWN INDICATION
     Route: 065
  15. LYRICA [Suspect]
     Indication: ABDOMINAL PAIN
     Route: 065
     Dates: start: 20080101
  16. ORAMORPH SR [Suspect]
     Route: 065
  17. ORAMORPH SR [Suspect]
     Route: 065

REACTIONS (2)
  - ABDOMINAL PAIN [None]
  - CARDIO-RESPIRATORY ARREST [None]
